FAERS Safety Report 5885074-3 (Version None)
Quarter: 2008Q3

REPORT INFORMATION
  Report Type: 
  Country: None (occurrence: None)
  Receive Date: 20080916
  Receipt Date: 20080910
  Transmission Date: 20090109
  Serious: Yes (Other)
  Sender: FDA-Public Use
  Company Number: JP-ASTRAZENECA-2008AP07199

PATIENT
  Age: 82 Year
  Sex: Male
  Weight: 58 kg

DRUGS (12)
  1. CRESTOR [Suspect]
     Indication: HYPERCHOLESTEROLAEMIA
     Route: 048
     Dates: start: 20080819, end: 20080822
  2. DIOVAN [Concomitant]
     Indication: HYPERTENSION
     Route: 048
  3. NITOROL [Concomitant]
     Indication: ANGINA PECTORIS
     Dosage: AS REQUIRED
     Route: 060
  4. HEPARIN SODIUM [Concomitant]
     Indication: ANGINA PECTORIS
     Dosage: NUMBER OF SEPARATE DOSAGES UNKNOWN
     Route: 041
     Dates: start: 20080820
  5. IOPAMIDOL-300 [Concomitant]
     Indication: ANGINA PECTORIS
     Dosage: DOSE UNKNOWN
     Route: 041
     Dates: start: 20080820
  6. ITOROL [Concomitant]
     Route: 048
     Dates: start: 20080822
  7. VOGLIBOSE OD [Concomitant]
     Indication: DIABETES MELLITUS
     Route: 048
     Dates: end: 20080822
  8. ACETYLCYSTEINE [Concomitant]
     Indication: RENAL DISORDER
     Route: 048
     Dates: start: 20080819, end: 20080821
  9. FLOMOX [Concomitant]
     Indication: INFECTION PROPHYLAXIS
     Route: 048
     Dates: start: 20080820, end: 20080820
  10. ASPIRIN [Concomitant]
     Indication: ANGINA PECTORIS
     Route: 048
     Dates: end: 20080823
  11. EBRANTIL [Concomitant]
     Indication: HYPERTENSION
     Route: 048
     Dates: end: 20080909
  12. NEUQUINON [Concomitant]
     Indication: CARDIAC FAILURE
     Route: 048
     Dates: end: 20080909

REACTIONS (1)
  - PLATELET COUNT DECREASED [None]
